FAERS Safety Report 4503870-1 (Version None)
Quarter: 2004Q4

REPORT INFORMATION
  Report Type: 
  Country: None (occurrence: None)
  Receive Date: 20041117
  Receipt Date: 20041112
  Transmission Date: 20050328
  Serious: Yes (Life-Threatening, Hospitalization, Disabling)
  Sender: FDA-Public Use
  Company Number: US-MERCK-0411USA02383

PATIENT
  Age: 64 Year
  Sex: Female

DRUGS (2)
  1. VIOXX [Suspect]
     Indication: ARTHRITIS
     Route: 048
     Dates: start: 19991201, end: 20010101
  2. VIOXX [Suspect]
     Route: 048
     Dates: start: 20010101, end: 20020101

REACTIONS (1)
  - MYOCARDIAL INFARCTION [None]
